FAERS Safety Report 19674570 (Version 1)
Quarter: 2021Q3

REPORT INFORMATION
  Report Type: Spontaneous
  Country: US (occurrence: US)
  Receive Date: 20210809
  Receipt Date: 20210809
  Transmission Date: 20211014
  Serious: Yes (Other)
  Sender: FDA-Public Use
  Company Number: None

PATIENT
  Age: 77 Year
  Sex: Male
  Weight: 110.25 kg

DRUGS (13)
  1. OMEPRAZOLE. [Concomitant]
     Active Substance: OMEPRAZOLE
  2. PRAVASTATIN. [Concomitant]
     Active Substance: PRAVASTATIN
  3. POTASSIUM CITRATE ER [Concomitant]
     Active Substance: POTASSIUM CITRATE
  4. ABIRATERONE. [Suspect]
     Active Substance: ABIRATERONE ACETATE
     Indication: PROSTATE CANCER
     Route: 048
     Dates: start: 20210709
  5. METOPROLOL. [Concomitant]
     Active Substance: METOPROLOL
  6. IRON [Concomitant]
     Active Substance: IRON
  7. PROLIA [Concomitant]
     Active Substance: DENOSUMAB
  8. PREDNISONE. [Concomitant]
     Active Substance: PREDNISONE
  9. XARELTO [Concomitant]
     Active Substance: RIVAROXABAN
  10. LUPRON [Concomitant]
     Active Substance: LEUPROLIDE ACETATE
  11. FUROSEMIDE. [Concomitant]
     Active Substance: FUROSEMIDE
  12. VITAMIN D [Concomitant]
     Active Substance: VITAMIN D NOS
  13. LORATADINE. [Concomitant]
     Active Substance: LORATADINE

REACTIONS (1)
  - Asthenia [None]

NARRATIVE: CASE EVENT DATE: 20210807
